FAERS Safety Report 8340870-8 (Version None)
Quarter: 2012Q2

REPORT INFORMATION
  Report Type: 
  Country: None (occurrence: None)
  Receive Date: 20120503
  Receipt Date: 20120501
  Transmission Date: 20120825
  Serious: Yes (Other)
  Sender: FDA-Public Use
  Company Number: ADR-2011-11659

PATIENT
  Age: 10 Year
  Sex: Male

DRUGS (2)
  1. LIORESAL [Suspect]
     Indication: MUSCLE SPASTICITY
  2. LIORESAL [Suspect]
     Indication: CEREBRAL PALSY

REACTIONS (6)
  - MUSCLE SPASTICITY [None]
  - IMPLANT SITE SWELLING [None]
  - INFECTION [None]
  - DRUG EFFECT DECREASED [None]
  - PYREXIA [None]
  - UNDERDOSE [None]
